FAERS Safety Report 21320786 (Version 1)
Quarter: 2022Q3

REPORT INFORMATION
  Report Type: Report from Study
  Country: BR (occurrence: BR)
  Receive Date: 20220912
  Receipt Date: 20220912
  Transmission Date: 20221027
  Serious: Yes (Other)
  Sender: FDA-Public Use
  Company Number: BR-NOVARTISPH-NVSC2022BR204596

PATIENT
  Age: 73 Year
  Sex: Male

DRUGS (1)
  1. INDACATEROL MALEATE [Suspect]
     Active Substance: INDACATEROL MALEATE
     Indication: Pulmonary fibrosis
     Dosage: UNK UNK, CONT
     Route: 065

REACTIONS (4)
  - Diabetes mellitus [Unknown]
  - Pulmonary fibrosis [Unknown]
  - Hypertension [Unknown]
  - Cardiac disorder [Unknown]
